FAERS Safety Report 12613268 (Version 1)
Quarter: 2016Q3

REPORT INFORMATION
  Report Type: Spontaneous
  Country: US (occurrence: None)
  Receive Date: 20160801
  Receipt Date: 20160801
  Transmission Date: 20161109
  Serious: Yes (Death)
  Sender: FDA-Public Use
  Company Number: None

PATIENT
  Age: 68 Year
  Sex: Male
  Weight: 74.84 kg

DRUGS (8)
  1. ANORO ELLIPTA [Suspect]
     Active Substance: UMECLIDINIUM BROMIDE\VILANTEROL TRIFENATATE
     Indication: ASTHMA
     Route: 055
     Dates: start: 20160229, end: 20160410
  2. FINASTERIDE. [Concomitant]
     Active Substance: FINASTERIDE
  3. ALBUTEROL. [Concomitant]
     Active Substance: ALBUTEROL
  4. RAMIPRIL. [Concomitant]
     Active Substance: RAMIPRIL
  5. VITAMIN B12 [Concomitant]
     Active Substance: CYANOCOBALAMIN
  6. ALBUTEROL INHALER [Concomitant]
     Active Substance: ALBUTEROL
  7. PREDNISONE. [Concomitant]
     Active Substance: PREDNISONE
  8. HYDROCODONE [Concomitant]
     Active Substance: HYDROCODONE

REACTIONS (6)
  - Loss of consciousness [None]
  - Drug ineffective [None]
  - Cardiac arrest [None]
  - Anoxia [None]
  - Asthma [None]
  - Brain injury [None]

NARRATIVE: CASE EVENT DATE: 20160410
